FAERS Safety Report 7986968-5 (Version None)
Quarter: 2011Q4

REPORT INFORMATION
  Report Type: 
  Country: None (occurrence: None)
  Receive Date: 20111216
  Receipt Date: 20110308
  Transmission Date: 20120403
  Serious: No
  Sender: FDA-Public Use
  Company Number: US-BRISTOL-MYERS SQUIBB COMPANY-15594013

PATIENT
  Age: 54 Year
  Sex: Female

DRUGS (5)
  1. KLONOPIN [Concomitant]
  2. SEROQUEL [Suspect]
     Dosage: 1 DF=200 UNIT NOT MENTIONED STARTED LAST FRIDAY,300 UNIT NOT MENTIONED TOMORROW
  3. PREVACID [Concomitant]
  4. ABILIFY [Suspect]
     Indication: BIPOLAR DISORDER
     Dates: start: 20090101
  5. LAMICTAL [Concomitant]
     Dosage: 1 DF = 150 UNIT NOT MENTIONED

REACTIONS (2)
  - RESTLESSNESS [None]
  - AKATHISIA [None]
